FAERS Safety Report 26193915 (Version 1)
Quarter: 2025Q4

REPORT INFORMATION
  Report Type: Spontaneous
  Country: CA (occurrence: CA)
  Receive Date: 20251224
  Receipt Date: 20251224
  Transmission Date: 20260118
  Serious: Yes (Life-Threatening, Other)
  Sender: HLS THERAPEUTICS
  Company Number: CA-HLS-202503266

PATIENT
  Age: 57 Year
  Sex: Male
  Weight: 97 kg

DRUGS (1)
  1. CLOZAPINE [Suspect]
     Active Substance: CLOZAPINE
     Indication: Product used for unknown indication
     Dosage: TABLETS DOSAGE FORM?THERAPY DURATION: 22 DAYS
     Route: 048

REACTIONS (2)
  - Cardiovascular disorder [Recovering/Resolving]
  - Myocarditis [Recovering/Resolving]
